FAERS Safety Report 15890535 (Version 2)
Quarter: 2019Q2

REPORT INFORMATION
  Report Type: Report from Study
  Country: None (occurrence: CA)
  Receive Date: 20190130
  Receipt Date: 20190410
  Transmission Date: 20190711
  Serious: Yes (Hospitalization)
  Sender: FDA-Public Use
  Company Number: CA-ABBVIE-18K-028-2597866-00

PATIENT
  Age: 45 Year
  Sex: Male
  Weight: 104.42 kg

DRUGS (3)
  1. HUMIRA [Suspect]
     Active Substance: ADALIMUMAB
     Indication: COLITIS ULCERATIVE
     Route: 058
     Dates: start: 20181003, end: 20181130
  2. HUMIRA [Suspect]
     Active Substance: ADALIMUMAB
     Indication: INFLAMMATORY BOWEL DISEASE
  3. PENTOSA [Suspect]
     Active Substance: PANTOPRAZOLE SODIUM
     Indication: INFLAMMATORY BOWEL DISEASE
     Route: 048
     Dates: end: 201812

REACTIONS (7)
  - Troponin increased [Unknown]
  - Diarrhoea [Unknown]
  - Pericarditis [Recovered/Resolved]
  - Asthenia [Unknown]
  - Fatigue [Unknown]
  - Influenza like illness [Unknown]
  - Pericardial effusion [Unknown]

NARRATIVE: CASE EVENT DATE: 20181210
